FAERS Safety Report 13264828 (Version 1)
Quarter: 2017Q1

REPORT INFORMATION
  Report Type: Spontaneous
  Country: US (occurrence: US)
  Receive Date: 20170223
  Receipt Date: 20170223
  Transmission Date: 20170428
  Serious: Yes (Other)
  Sender: FDA-Public Use
  Company Number: US-LPDUSPRD-20170170

PATIENT
  Age: 20 Year
  Sex: Male

DRUGS (5)
  1. AMPHOTERICIN B. [Suspect]
     Active Substance: AMPHOTERICIN B
     Dosage: 3 MG/KG DAILY
     Route: 065
  2. VORICONAZOLE. [Concomitant]
     Active Substance: VORICONAZOLE
     Dosage: 200 MG TWICE DAILY
     Route: 065
  3. LEVETIRACETAM INJECTION (0517-3605-01) [Concomitant]
     Active Substance: LEVETIRACETAM
     Dosage: DOSE UNKNOWN
     Route: 065
  4. DEXAMETHASONE SODIUM PHOSPHATE INJECTION, USP (4901-25) [Suspect]
     Active Substance: DEXAMETHASONE SODIUM PHOSPHATE
     Dosage: 1 MG DAILY (TAPER)
     Route: 065
  5. FLUCONAZOLE. [Concomitant]
     Active Substance: FLUCONAZOLE
     Dosage: 400 MG 2X/DAILY
     Route: 065

REACTIONS (4)
  - Blood potassium abnormal [Unknown]
  - Cushingoid [Unknown]
  - Chronic kidney disease [Unknown]
  - Blood magnesium abnormal [Unknown]
